FAERS Safety Report 16598274 (Version 3)
Quarter: 2019Q4

REPORT INFORMATION
  Report Type: Report from Study
  Country: DE (occurrence: DE)
  Receive Date: 20190719
  Receipt Date: 20191213
  Transmission Date: 20200122
  Serious: Yes (Hospitalization)
  Sender: FDA-Public Use
  Company Number: DE-ASTRAZENECA-2019SF02161

PATIENT
  Age: 48 Year
  Sex: Female

DRUGS (17)
  1. ESOMEPRAZOLE MAGNESIUM. [Suspect]
     Active Substance: ESOMEPRAZOLE MAGNESIUM
     Dosage: 40.0MG UNKNOWN
     Route: 048
  2. PALEXIA [Concomitant]
     Active Substance: TAPENTADOL HYDROCHLORIDE
     Dosage: 500 MG, 1X/DAY (MORNING AND EVENING)
     Route: 065
  3. TOCILIZUMAB. [Suspect]
     Active Substance: TOCILIZUMAB
     Indication: RHEUMATOID ARTHRITIS
     Dosage: UNK1.0DF ONCE/SINGLE ADMINISTRATION
     Route: 042
     Dates: start: 201809, end: 201809
  4. TOCILIZUMAB. [Suspect]
     Active Substance: TOCILIZUMAB
     Indication: RHEUMATOID ARTHRITIS
     Dosage: 162.0MG ONCE/SINGLE ADMINISTRATION
     Route: 058
     Dates: start: 20161201, end: 201804
  5. PALEXIA [Concomitant]
     Active Substance: TAPENTADOL HYDROCHLORIDE
     Dosage: 50 MG, AS NEEDED50.0MG AS REQUIRED
     Route: 065
  6. RAMIPRIL. [Concomitant]
     Active Substance: RAMIPRIL
     Dosage: 2.5 MG, 1X/DAY
     Route: 065
  7. RAMIPRIL. [Concomitant]
     Active Substance: RAMIPRIL
     Dosage: 5 MG, 1X/DAY
     Route: 065
  8. INUVAIR [Concomitant]
     Active Substance: BECLOMETHASONE DIPROPIONATE\FORMOTEROL FUMARATE
     Dosage: UNK UNK, AS NEEDED
     Route: 065
  9. EBASTIN [Concomitant]
     Active Substance: EBASTINE
     Dosage: 10 MG, AS NEEDED10.0MG AS REQUIRED
     Route: 065
  10. TIZANIDINE. [Concomitant]
     Active Substance: TIZANIDINE
     Dosage: 2 MG, 1X/DAY
     Route: 065
  11. DEKRISTOL [Concomitant]
     Active Substance: CHOLECALCIFEROL
     Dosage: 2000 IU, WEEKLY
     Route: 065
  12. TOCILIZUMAB. [Suspect]
     Active Substance: TOCILIZUMAB
     Indication: RHEUMATOID ARTHRITIS
     Dosage: 162.0MG ONCE/SINGLE ADMINISTRATION
     Route: 058
     Dates: start: 201805
  13. L-THYROXIN [LEVOTHYROXINE] [Concomitant]
     Active Substance: LEVOTHYROXINE SODIUM
     Dosage: 75 UG, 1X/DAY
     Route: 065
  14. SORMODREN [Concomitant]
     Active Substance: BORNAPRINE HYDROCHLORIDE
     Dosage: 4 MG, 1X/DAY
     Route: 065
  15. NOVAMINSULFON [Concomitant]
     Active Substance: METAMIZOLE
     Dosage: UNK, AS NEEDED
     Route: 065
  16. TIZANIDINE. [Concomitant]
     Active Substance: TIZANIDINE
     Dosage: 4 MG, AS NEEDED4.0MG AS REQUIRED
     Route: 065
  17. FLUTICASONE FUROATE,VILANTEROL TRIFENATATE [Concomitant]
     Dosage: UNK, 1X/DAY
     Route: 065

REACTIONS (13)
  - Ankle fracture [Recovered/Resolved]
  - Muscle spasms [Recovered/Resolved]
  - Peripheral swelling [Recovered/Resolved]
  - Fall [Unknown]
  - Arthralgia [Recovered/Resolved]
  - Foot fracture [Recovering/Resolving]
  - Pain in extremity [Unknown]
  - Drug intolerance [Recovered/Resolved]
  - Joint swelling [Recovered/Resolved]
  - Gastrointestinal viral infection [Recovered/Resolved]
  - Muscle strain [Recovered/Resolved]
  - Infection susceptibility increased [Recovered/Resolved]
  - Impaired healing [Recovered/Resolved]

NARRATIVE: CASE EVENT DATE: 20170601
